FAERS Safety Report 10167623 (Version 2)
Quarter: 2014Q2

REPORT INFORMATION
  Report Type: Spontaneous
  Country: GB (occurrence: GB)
  Receive Date: 20140512
  Receipt Date: 20140624
  Transmission Date: 20141212
  Serious: Yes (Other)
  Sender: FDA-Public Use
  Company Number: GB-ASTELLAS-2014US005214

PATIENT
  Sex: Female

DRUGS (4)
  1. ERLOTINIB [Suspect]
     Indication: LUNG NEOPLASM MALIGNANT
     Route: 065
     Dates: start: 20140213
  2. ERLOTINIB [Suspect]
     Route: 065
     Dates: start: 20140312
  3. ERLOTINIB [Suspect]
     Route: 065
     Dates: start: 20140409
  4. ERLOTINIB [Suspect]
     Dosage: 50 UNK, UNK
     Route: 065
     Dates: start: 20140604

REACTIONS (16)
  - Dysgeusia [Recovering/Resolving]
  - Macule [Recovering/Resolving]
  - Diarrhoea [Recovering/Resolving]
  - Mouth ulceration [Recovering/Resolving]
  - Alopecia [Not Recovered/Not Resolved]
  - Dry mouth [Recovering/Resolving]
  - Alopecia [Unknown]
  - Epistaxis [Unknown]
  - Alopecia [Unknown]
  - Rash [Recovered/Resolved]
  - Dry skin [Unknown]
  - Decreased appetite [Unknown]
  - Skin fissures [Unknown]
  - Hair texture abnormal [Unknown]
  - Hair disorder [Unknown]
  - Nail disorder [Unknown]
